FAERS Safety Report 6637263-8 (Version None)
Quarter: 2010Q1

REPORT INFORMATION
  Report Type: 
  Country: None (occurrence: None)
  Receive Date: 20100310
  Receipt Date: 20100225
  Transmission Date: 20100710
  Serious: Yes (Death, Hospitalization)
  Sender: FDA-Public Use
  Company Number: 004204

PATIENT
  Sex: Female
  Weight: 69 kg

DRUGS (6)
  1. CERTOLIZUMAB PEGOL (CERTOLIZUMAB PEGOL) [Suspect]
     Indication: RHEUMATOID ARTHRITIS
     Dosage: SEE IMAGE
     Route: 058
     Dates: start: 20050905, end: 20060822
  2. CERTOLIZUMAB PEGOL (CERTOLIZUMAB PEGOL) [Suspect]
     Indication: RHEUMATOID ARTHRITIS
     Dosage: SEE IMAGE
     Route: 058
     Dates: start: 20060904, end: 20071126
  3. CERTOLIZUMAB PEGOL (CERTOLIZUMAB PEGOL) [Suspect]
     Indication: RHEUMATOID ARTHRITIS
     Dosage: SEE IMAGE
     Route: 058
     Dates: start: 20071210, end: 20100111
  4. METHOTREXATE [Concomitant]
  5. ETORICOXIB [Concomitant]
  6. MEPREDNISONE [Concomitant]

REACTIONS (9)
  - BACTERIAL TEST POSITIVE [None]
  - CARDIOVASCULAR INSUFFICIENCY [None]
  - HEPATIC FAILURE [None]
  - KLEBSIELLA INFECTION [None]
  - LEUKOCYTOSIS [None]
  - MULTI-ORGAN FAILURE [None]
  - NEUTROPHILIA [None]
  - PNEUMONIA [None]
  - RENAL FAILURE [None]
